FAERS Safety Report 8601090 (Version 2)
Quarter: 2015Q1

REPORT INFORMATION
  Report Type: Spontaneous
  Country: US (occurrence: US)
  Receive Date: 20120606
  Receipt Date: 20150304
  Transmission Date: 20150721
  Serious: Yes (Hospitalization, Other)
  Sender: FDA-Public Use
  Company Number: US-ROCHE-1074550

PATIENT
  Age: 67 Year
  Sex: Female

DRUGS (7)
  1. OMEPRAZOLE. [Concomitant]
     Active Substance: OMEPRAZOLE
     Route: 065
     Dates: start: 2002, end: 2008
  2. COMBIVENT [Concomitant]
     Active Substance: ALBUTEROL SULFATE\IPRATROPIUM BROMIDE
     Indication: CHRONIC OBSTRUCTIVE PULMONARY DISEASE
     Route: 065
     Dates: start: 2000, end: 2009
  3. BONIVA [Suspect]
     Active Substance: IBANDRONATE SODIUM
     Indication: OSTEOPOROSIS
     Route: 048
     Dates: start: 200602, end: 201108
  4. ALLEGRA-D [Concomitant]
     Active Substance: FEXOFENADINE\PSEUDOEPHEDRINE
     Indication: HYPERSENSITIVITY
     Route: 065
     Dates: start: 2003, end: 2006
  5. FOSAMAX [Suspect]
     Active Substance: ALENDRONATE SODIUM
     Indication: OSTEOPOROSIS
     Route: 048
     Dates: start: 19990901, end: 200006
  6. FOSAMAX [Suspect]
     Active Substance: ALENDRONATE SODIUM
     Route: 048
     Dates: start: 200006, end: 200602
  7. PREVACID [Concomitant]
     Active Substance: LANSOPRAZOLE
     Route: 065
     Dates: start: 2003

REACTIONS (5)
  - Femur fracture [Unknown]
  - Femur fracture [Unknown]
  - Anxiety [Unknown]
  - Emotional distress [Unknown]
  - Low turnover osteopathy [Unknown]

NARRATIVE: CASE EVENT DATE: 20060317
